FAERS Safety Report 10042088 (Version 3)
Quarter: 2014Q2

REPORT INFORMATION
  Report Type: Spontaneous
  Country: DK (occurrence: DK)
  Receive Date: 20140327
  Receipt Date: 20140509
  Transmission Date: 20141212
  Serious: Yes (Other)
  Sender: FDA-Public Use
  Company Number: DK-JNJFOC-20140313435

PATIENT
  Age: 7 Decade
  Sex: Female

DRUGS (4)
  1. NICORETTE FRESHMINT [Suspect]
     Indication: SMOKING CESSATION THERAPY
     Route: 048
  2. NICORETTE FRESHMINT [Suspect]
     Indication: SMOKING CESSATION THERAPY
     Route: 048
  3. NICORETTE FRESHMINT [Suspect]
     Indication: PRODUCT USED FOR UNKNOWN INDICATION
     Route: 048
  4. MEDICATIONS FOR DIABETES [Concomitant]
     Indication: TYPE 2 DIABETES MELLITUS
     Route: 065

REACTIONS (2)
  - Drug dependence [Recovered/Resolved]
  - Intentional product misuse [Unknown]
